FAERS Safety Report 18283904 (Version 2)
Quarter: 2020Q4

REPORT INFORMATION
  Report Type: Spontaneous
  Country: US (occurrence: US)
  Receive Date: 20200918
  Receipt Date: 20201112
  Transmission Date: 20210113
  Serious: Yes (Other)
  Sender: FDA-Public Use
  Company Number: US-JNJFOC-20200920801

PATIENT
  Age: 76 Year
  Sex: Male
  Weight: 85.35 kg

DRUGS (7)
  1. LINZESS [Concomitant]
     Active Substance: LINACLOTIDE
  2. EZETIMIBE. [Concomitant]
     Active Substance: EZETIMIBE
  3. METFORMIN [Concomitant]
     Active Substance: METFORMIN HYDROCHLORIDE
  4. PANTOPRAZOLE [Concomitant]
     Active Substance: PANTOPRAZOLE
     Route: 065
  5. XARELTO [Suspect]
     Active Substance: RIVAROXABAN
     Indication: THROMBOSIS
     Route: 048
     Dates: end: 20200903
  6. SILODOSIN. [Concomitant]
     Active Substance: SILODOSIN
  7. FENOFIBRIC [Concomitant]
     Active Substance: FENOFIBRIC ACID

REACTIONS (3)
  - Eye operation [Unknown]
  - Epistaxis [Unknown]
  - Iron deficiency anaemia [Unknown]
